FAERS Safety Report 6909634-3 (Version None)
Quarter: 2010Q3

REPORT INFORMATION
  Report Type: 
  Country: None (occurrence: None)
  Receive Date: 20100805
  Receipt Date: 20100727
  Transmission Date: 20110219
  Serious: Yes (Hospitalization, Disabling, Other)
  Sender: FDA-Public Use
  Company Number: US-MERCK-0902USA01610

PATIENT
  Age: 59 Year
  Sex: Female
  Weight: 95 kg

DRUGS (7)
  1. FOSAMAX [Suspect]
     Indication: OSTEOPOROSIS
     Route: 048
     Dates: start: 20000101, end: 20070501
  2. FOSAMAX [Suspect]
     Route: 048
     Dates: start: 19960701
  3. SYNTHROID [Concomitant]
     Indication: HYPOTHYROIDISM
     Route: 065
  4. REMICADE [Concomitant]
     Indication: RHEUMATOID ARTHRITIS
     Route: 065
  5. CALCIUM (UNSPECIFIED) [Concomitant]
     Route: 065
  6. VITAMIN D (UNSPECIFIED) [Concomitant]
     Route: 065
  7. METHOTREXATE [Concomitant]
     Indication: RHEUMATOID ARTHRITIS
     Route: 065

REACTIONS (44)
  - ADVERSE DRUG REACTION [None]
  - ANAEMIA OF CHRONIC DISEASE [None]
  - ANXIETY [None]
  - ARTHRITIS [None]
  - ARTHROPATHY [None]
  - BACK PAIN [None]
  - BLOOD PRESSURE INCREASED [None]
  - BONE DENSITY DECREASED [None]
  - BRONCHITIS [None]
  - BRUXISM [None]
  - COLON ADENOMA [None]
  - COUGH [None]
  - DEHYDRATION [None]
  - DEPRESSION [None]
  - DRY MOUTH [None]
  - FIBULA FRACTURE [None]
  - GASTROOESOPHAGEAL REFLUX DISEASE [None]
  - GINGIVAL ERYTHEMA [None]
  - GINGIVAL PAIN [None]
  - HERPES ZOSTER [None]
  - HYPERLIPIDAEMIA [None]
  - INJURY [None]
  - INSOMNIA [None]
  - INTERVERTEBRAL DISC PROTRUSION [None]
  - JOINT SPRAIN [None]
  - KYPHOSIS [None]
  - MASTICATION DISORDER [None]
  - MICTURITION URGENCY [None]
  - OEDEMA [None]
  - OEDEMA MOUTH [None]
  - OSTEOMYELITIS [None]
  - OSTEONECROSIS OF JAW [None]
  - OSTEOPENIA [None]
  - PEPTIC ULCER [None]
  - POLLAKIURIA [None]
  - PSEUDOMEMBRANOUS COLITIS [None]
  - RESTLESS LEGS SYNDROME [None]
  - RHINITIS [None]
  - SPINAL COMPRESSION FRACTURE [None]
  - STRESS URINARY INCONTINENCE [None]
  - TOOTHACHE [None]
  - UPPER RESPIRATORY TRACT INFECTION [None]
  - VISUAL ACUITY REDUCED [None]
  - WEIGHT DECREASED [None]
